FAERS Safety Report 9380400 (Version 2)
Quarter: 2013Q3

REPORT INFORMATION
  Report Type: Report from Study
  Country: BR (occurrence: BR)
  Receive Date: 20130702
  Receipt Date: 20130731
  Transmission Date: 20140515
  Serious: Yes (Hospitalization, Other)
  Sender: FDA-Public Use
  Company Number: PHHY2013BR068675

PATIENT
  Age: 66 Year
  Sex: Female
  Weight: 66 kg

DRUGS (7)
  1. ACLASTA [Suspect]
     Indication: OSTEOPOROSIS
     Dosage: 5 MG, UNK
     Route: 042
     Dates: start: 2011, end: 2013
  2. SELOZOK [Concomitant]
     Indication: BLOOD PRESSURE ABNORMAL
     Dosage: 25 MG, A DAY
     Route: 048
  3. SELOZOK [Concomitant]
     Indication: CARDIAC DISORDER
  4. CALCIUM D3                         /00944201/ [Concomitant]
     Dosage: UNK UKN, UNK
  5. PERIDAL//DOMPERIDONE [Concomitant]
     Dosage: UNK UKN, UNK
  6. PROCIMAX [Concomitant]
     Indication: DEPRESSION
     Dosage: 20 MG, A DAY
     Route: 048
  7. PROCIMAX [Concomitant]
     Indication: ANXIETY

REACTIONS (5)
  - Aneurysm [Not Recovered/Not Resolved]
  - Meningitis [Recovered/Resolved]
  - Pulmonary oedema [Recovered/Resolved]
  - Weight increased [Not Recovered/Not Resolved]
  - Hypersomnia [Not Recovered/Not Resolved]
